FAERS Safety Report 5448429-7 (Version None)
Quarter: 2007Q3

REPORT INFORMATION
  Report Type: 
  Country: None (occurrence: None)
  Receive Date: 20070906
  Receipt Date: 20070823
  Transmission Date: 20080115
  Serious: Yes (Other)
  Sender: FDA-Public Use
  Company Number: 237102K07USA

PATIENT
  Age: 70 Year
  Sex: Male

DRUGS (3)
  1. REBIF [Suspect]
     Indication: MULTIPLE SCLEROSIS
     Dosage: 44 MCG, 3 IN 1 WEEKS, SUBCUTANEOUS
     Route: 058
     Dates: start: 20070723
  2. GLUCOPHAGE [Concomitant]
  3. PLAVIX [Concomitant]

REACTIONS (3)
  - HAEMOPTYSIS [None]
  - PULMONARY CALCIFICATION [None]
  - PULMONARY MASS [None]
